FAERS Safety Report 8201146-2 (Version None)
Quarter: 2012Q1

REPORT INFORMATION
  Report Type: 
  Country: None (occurrence: None)
  Receive Date: 20120312
  Receipt Date: 20120305
  Transmission Date: 20120608
  Serious: Yes (Hospitalization)
  Sender: FDA-Public Use
  Company Number: JP-JNJFOC-20120104858

PATIENT
  Sex: Male
  Weight: 57.2 kg

DRUGS (6)
  1. LANSOPRAZOLE [Concomitant]
     Dates: start: 20101111
  2. DIFLUCORTOLONE VALERATE [Concomitant]
     Route: 061
  3. STELARA [Suspect]
     Indication: PSORIATIC ARTHROPATHY
     Route: 058
     Dates: start: 20111227
  4. MAXACALCITOL [Concomitant]
     Route: 061
  5. STELARA [Suspect]
     Route: 058
     Dates: start: 20120207
  6. DICLOFENAC SODIUM [Concomitant]
     Indication: PAIN
     Dates: start: 20101130

REACTIONS (1)
  - CHOLECYSTITIS [None]
